FAERS Safety Report 5338138-7 (Version None)
Quarter: 2007Q2

REPORT INFORMATION
  Report Type: 
  Country: None (occurrence: None)
  Receive Date: 20070530
  Receipt Date: 20070517
  Transmission Date: 20071010
  Serious: Yes (Hospitalization, Other)
  Sender: FDA-Public Use
  Company Number: PHEH2007US04468

PATIENT
  Age: 82 Year
  Sex: Male

DRUGS (1)
  1. ZELNORM [Suspect]
     Route: 048

REACTIONS (3)
  - CHEST PAIN [None]
  - ELECTROCARDIOGRAM AMBULATORY [None]
  - PALPITATIONS [None]
